FAERS Safety Report 17292130 (Version 1)
Quarter: 2020Q1

REPORT INFORMATION
  Report Type: Spontaneous
  Country: CN (occurrence: CN)
  Receive Date: 20200121
  Receipt Date: 20200121
  Transmission Date: 20200409
  Serious: Yes (Other)
  Sender: FDA-Public Use
  Company Number: CN-BAYER-2019-223007

PATIENT
  Age: 71 Year
  Sex: Male
  Weight: 72.4 kg

DRUGS (1)
  1. AVELOX [Suspect]
     Active Substance: MOXIFLOXACIN HYDROCHLORIDE
     Indication: ANTI-INFECTIVE THERAPY
     Dosage: 0.4 G, QD
     Route: 041
     Dates: start: 20191119, end: 20191125

REACTIONS (1)
  - Leukopenia [None]

NARRATIVE: CASE EVENT DATE: 20191121
